FAERS Safety Report 5067224-4 (Version None)
Quarter: 2006Q3

REPORT INFORMATION
  Report Type: 
  Country: None (occurrence: None)
  Receive Date: 20060726
  Receipt Date: 20060711
  Transmission Date: 20061208
  Serious: Yes (Hospitalization)
  Sender: FDA-Public Use
  Company Number: 2006EU001867

PATIENT
  Age: 48 Year
  Sex: Female
  Weight: 58.1 kg

DRUGS (3)
  1. FK506 (TACROLIMUS) CAPSULE [Suspect]
     Indication: RENAL TRANSPLANT
     Dosage: 6 MG, ORAL
     Route: 048
     Dates: start: 20060510
  2. EVEROLIMUS (EVEROLIMUS) [Suspect]
     Indication: RENAL TRANSPLANT
     Dosage: 2 MG, ORAL
     Route: 048
     Dates: start: 20060511
  3. PREDNISONE TAB [Concomitant]

REACTIONS (1)
  - LYMPHOCELE [None]
